FAERS Safety Report 9782504 (Version 1)
Quarter: 2013Q4

REPORT INFORMATION
  Report Type: Spontaneous
  Country: DE (occurrence: None)
  Receive Date: 20131220
  Receipt Date: 20131220
  Transmission Date: 20140711
  Serious: Yes (Other)
  Sender: FDA-Public Use
  Company Number: SYM-2013-14166

PATIENT
  Age: 80 Year
  Sex: Male

DRUGS (5)
  1. TASMAR [Suspect]
     Indication: PARKINSON^S DISEASE
     Dates: start: 201211, end: 201301
  2. MADOPAR LT (MADOPAR) (LEVODOPA, BENSERAZIDE HYDROCHLORIDE) [Concomitant]
  3. NEUPRO (ROTIGOTINE) (TRANSDERMAL PATCH) (ROTIGOTINE) [Concomitant]
  4. RAMILICH (RAMIPRIL) (RAMIPRIL) [Concomitant]
  5. ALFUZOSIN (ALFUZOSIN) (ALFUZOSIN) [Concomitant]

REACTIONS (2)
  - Urinary retention [None]
  - Pyelonephritis [None]
